FAERS Safety Report 24105950 (Version 1)
Quarter: 2024Q3

REPORT INFORMATION
  Report Type: Spontaneous
  Country: AU (occurrence: AU)
  Receive Date: 20240717
  Receipt Date: 20240717
  Transmission Date: 20241017
  Serious: Yes (Death, Other)
  Sender: SANDOZ
  Company Number: AU-ASPEN-AUS2024AU003640

PATIENT
  Age: 67 Year
  Sex: Female

DRUGS (9)
  1. AMSACRINE [Suspect]
     Active Substance: AMSACRINE
     Indication: Acute myeloid leukaemia
     Route: 065
  2. CYTARABINE [Suspect]
     Active Substance: CYTARABINE
     Indication: Acute myeloid leukaemia
     Dosage: UNK
     Route: 065
  3. FLUDARABINE PHOSPHATE [Suspect]
     Active Substance: FLUDARABINE PHOSPHATE
     Indication: Acute myeloid leukaemia
     Route: 065
  4. MELPHALAN [Suspect]
     Active Substance: MELPHALAN
     Indication: Acute myeloid leukaemia
     Route: 065
  5. PREDNISOLONE [Suspect]
     Active Substance: PREDNISOLONE
     Indication: Glomerulonephritis membranous
     Dosage: 1 MG/KG
     Route: 048
  6. RITUXIMAB [Suspect]
     Active Substance: RITUXIMAB
     Indication: Glomerulonephritis membranous
     Dosage: 1 G
     Route: 065
  7. TACROLIMUS [Suspect]
     Active Substance: TACROLIMUS
     Indication: Glomerulonephritis membranous
     Route: 065
  8. CYCLOSPORINE [Concomitant]
     Active Substance: CYCLOSPORINE
     Indication: Prophylaxis against graft versus host disease
     Route: 065
  9. METHOTREXATE [Concomitant]
     Active Substance: METHOTREXATE
     Indication: Prophylaxis against graft versus host disease
     Route: 065

REACTIONS (3)
  - Thrombotic microangiopathy [Fatal]
  - Drug ineffective [Unknown]
  - Off label use [Unknown]
